FAERS Safety Report 5700521-5 (Version None)
Quarter: 2008Q2

REPORT INFORMATION
  Report Type: 
  Country: None (occurrence: None)
  Receive Date: 20080410
  Receipt Date: 20080403
  Transmission Date: 20081010
  Serious: Yes (Other)
  Sender: FDA-Public Use
  Company Number: US-KINGPHARMUSA00001-K200800390

PATIENT
  Age: 61 Year
  Sex: Female

DRUGS (4)
  1. ALTACE [Suspect]
     Indication: HYPERTENSION
     Dosage: 2.5 MG, QD
     Dates: start: 20050901
  2. ALTACE [Suspect]
     Dosage: 5 MG, QD
     Dates: start: 20050901
  3. TAMOXIFEN CITRATE [Concomitant]
     Indication: BREAST CANCER
     Dosage: UNK, UNK
     Dates: start: 20030101, end: 20080201
  4. LETROZOLE [Concomitant]
     Indication: BREAST CANCER
     Dates: end: 20080201

REACTIONS (4)
  - MICTURITION URGENCY [None]
  - POLLAKIURIA [None]
  - RENAL IMPAIRMENT [None]
  - RESTLESS LEGS SYNDROME [None]
